FAERS Safety Report 12936065 (Version 4)
Quarter: 2017Q1

REPORT INFORMATION
  Report Type: Spontaneous
  Country: DE (occurrence: DE)
  Receive Date: 20161114
  Receipt Date: 20170303
  Transmission Date: 20170428
  Serious: Yes (Death, Hospitalization)
  Sender: FDA-Public Use
  Company Number: DE-JNJFOC-20161104531

PATIENT
  Sex: Male
  Weight: 96 kg

DRUGS (5)
  1. PREDNISOLONE. [Concomitant]
     Active Substance: PREDNISOLONE
     Route: 065
  2. MORPHINE [Suspect]
     Active Substance: MORPHINE
     Indication: SPINAL PAIN
     Route: 065
     Dates: start: 20160901
  3. TRENANTONE [Concomitant]
     Active Substance: LEUPROLIDE ACETATE
     Route: 065
  4. BICALUTAMIDE. [Concomitant]
     Active Substance: BICALUTAMIDE
     Route: 065
  5. ZYTIGA [Suspect]
     Active Substance: ABIRATERONE ACETATE
     Indication: PROSTATE CANCER METASTATIC
     Route: 048
     Dates: start: 20160808

REACTIONS (4)
  - Spinal pain [Unknown]
  - Faecaloma [Unknown]
  - Cardiac failure [Fatal]
  - Prostatic specific antigen increased [Unknown]
